FAERS Safety Report 24541102 (Version 1)
Quarter: 2024Q4

REPORT INFORMATION
  Report Type: Spontaneous
  Country: US (occurrence: US)
  Receive Date: 20241023
  Receipt Date: 20241023
  Transmission Date: 20250115
  Serious: No
  Sender: MYLAN
  Company Number: US-MYLANLABS-2024M1089965

PATIENT
  Sex: Female
  Weight: 79.38 kg

DRUGS (1)
  1. XULANE [Suspect]
     Active Substance: ETHINYL ESTRADIOL\NORELGESTROMIN
     Indication: Migraine
     Dosage: 150/35 MICROGRAM, QD (EVERY SUNDAY FOR 3 WEEKS AND SKIP FOR ONE WEEK)
     Route: 062

REACTIONS (2)
  - Drug effective for unapproved indication [Unknown]
  - Product adhesion issue [Unknown]
